FAERS Safety Report 5253193-0 (Version None)
Quarter: 2007Q1

REPORT INFORMATION
  Report Type: 
  Country: None (occurrence: None)
  Receive Date: 20070301
  Receipt Date: 20070223
  Transmission Date: 20070707
  Serious: Yes (Other)
  Sender: FDA-Public Use
  Company Number: US-MERCK-0702USA01335

PATIENT
  Age: 58 Year
  Sex: Female
  Weight: 83 kg

DRUGS (13)
  1. SYNTHROID [Concomitant]
     Route: 065
  2. VYTORIN [Concomitant]
     Route: 048
  3. JANUVIA [Suspect]
     Indication: DIABETES MELLITUS NON-INSULIN-DEPENDENT
     Route: 048
     Dates: start: 20061218, end: 20070202
  4. JANUVIA [Suspect]
     Route: 048
     Dates: start: 20070216
  5. METFORMIN [Concomitant]
     Route: 065
  6. LIPITOR [Concomitant]
     Route: 065
  7. DEPAKOTE [Concomitant]
     Route: 065
  8. DEPAKOTE [Concomitant]
     Route: 065
  9. DILANTIN [Concomitant]
     Route: 065
  10. ACTOS [Concomitant]
     Route: 065
  11. LISINOPRIL [Concomitant]
     Route: 065
  12. AMARYL [Concomitant]
     Route: 065
  13. METOPROLOL [Concomitant]
     Route: 065

REACTIONS (1)
  - RASH PRURITIC [None]
